FAERS Safety Report 8850367 (Version 2)
Quarter: 2012Q4

REPORT INFORMATION
  Report Type: 
  Country: JP (occurrence: JP)
  Receive Date: 20121019
  Receipt Date: 20121109
  Transmission Date: 20130627
  Serious: Yes (Hospitalization, Other)
  Sender: FDA-Public Use
  Company Number: JP-BAXTER-2012BAX019912

PATIENT
  Age: 0 Year
  Sex: Male
  Weight: 9.1 kg

DRUGS (14)
  1. ADVATE [Suspect]
     Indication: CEREBRAL HAEMORRHAGE
     Route: 042
     Dates: start: 20120905, end: 20120906
  2. ADVATE [Suspect]
     Indication: HAEMOPHILIA A
     Route: 042
     Dates: start: 20120907, end: 20120914
  3. ADVATE [Suspect]
     Indication: FACTOR VIII DEFICIENCY
     Route: 042
     Dates: start: 20120920, end: 20120920
  4. ADVATE [Suspect]
     Indication: HEMORRHAGE CONTROL
     Route: 042
     Dates: start: 20120924, end: 20120924
  5. ADVATE [Suspect]
     Route: 042
     Dates: start: 20120928, end: 20120928
  6. ADVATE [Suspect]
     Route: 042
     Dates: start: 20121002, end: 20121002
  7. ADVATE [Suspect]
     Route: 042
     Dates: start: 20121003, end: 20121003
  8. ADVATE 250 [Suspect]
     Indication: FACTOR VIII DEFICIENCY
     Route: 042
     Dates: start: 20120915, end: 20120915
  9. ADVATE 250 [Suspect]
     Route: 042
     Dates: start: 20120917, end: 20120917
  10. FFP [Concomitant]
     Dates: start: 20120825
  11. GLYCEOL [Concomitant]
     Indication: CEREBRAL HAEMORRHAGE
     Route: 041
     Dates: start: 20120903, end: 20120910
  12. GLYCEOL [Concomitant]
     Indication: MYELITIS
  13. PREDONINE [Concomitant]
     Indication: MYELITIS
     Route: 042
     Dates: start: 20120903, end: 20120909
  14. GASTER [Concomitant]
     Indication: GASTRIC ULCER PROPHYLAXIS
     Route: 042
     Dates: start: 20120903, end: 20120909

REACTIONS (2)
  - Factor VIII inhibition [Not Recovered/Not Resolved]
  - Hydrocephalus [Not Recovered/Not Resolved]
